FAERS Safety Report 10005146 (Version 1)
Quarter: 2014Q1

REPORT INFORMATION
  Report Type: Spontaneous
  Country: MX (occurrence: MX)
  Receive Date: 20140312
  Receipt Date: 20140312
  Transmission Date: 20141002
  Serious: Yes (Other)
  Sender: FDA-Public Use
  Company Number: PHHY2014MX027601

PATIENT
  Age: 22 Year
  Sex: Male
  Weight: 69 kg

DRUGS (13)
  1. METRONIDAZOLE [Suspect]
     Dosage: 500 MG, Q8H
     Route: 042
  2. CLINDAMYCIN [Concomitant]
     Indication: TONSILLITIS
     Dosage: 1800 MG, PER DAY
  3. MEROPENEM [Concomitant]
     Dosage: 1 G, Q8H
  4. AMIKACIN [Concomitant]
     Dosage: 500 MG, Q12H
  5. FLUCONAZOLE [Concomitant]
     Indication: PROPHYLAXIS
     Dosage: 100 MG, Q12H
  6. NYSTATIN [Concomitant]
     Indication: PROPHYLAXIS
     Route: 048
  7. KETOPROFEN [Concomitant]
     Indication: ANALGESIC THERAPY
  8. BENZONATATE [Concomitant]
     Indication: COUGH
  9. IPRATROPIUM [Concomitant]
     Indication: COUGH
  10. BUDESONIDE [Concomitant]
     Indication: COUGH
  11. OMEPRAZOLE [Concomitant]
     Indication: PROPHYLAXIS
  12. PARACETAMOL [Concomitant]
     Indication: PYREXIA
  13. PEGFILGRASTIM [Concomitant]

REACTIONS (2)
  - Phlebitis [Unknown]
  - Pyrexia [Unknown]
